FAERS Safety Report 22186794 (Version 3)
Quarter: 2023Q2

REPORT INFORMATION
  Report Type: Spontaneous
  Country: DE (occurrence: DE)
  Receive Date: 20230407
  Receipt Date: 20230502
  Transmission Date: 20230722
  Serious: Yes (Other)
  Sender: FDA-Public Use
  Company Number: DE-SA-2023SA105531

PATIENT
  Age: 8 Year
  Sex: Female
  Weight: 27.4 kg

DRUGS (42)
  1. METHYLPREDNISOLONE [Suspect]
     Active Substance: METHYLPREDNISOLONE
     Indication: Acute graft versus host disease in skin
     Dosage: 2 MG/KG/D
     Route: 042
  2. METHYLPREDNISOLONE [Suspect]
     Active Substance: METHYLPREDNISOLONE
     Dosage: PULSE WITH 10 MG/KG, QD
     Route: 042
  3. METHYLPREDNISOLONE [Suspect]
     Active Substance: METHYLPREDNISOLONE
     Dosage: 2 MG/KG/D
     Route: 048
  4. METHYLPREDNISOLONE [Suspect]
     Active Substance: METHYLPREDNISOLONE
     Dosage: 0.1MG/KG QD
     Route: 048
  5. METHYLPREDNISOLONE [Suspect]
     Active Substance: METHYLPREDNISOLONE
     Dosage: UNK,DOSE REDUCTION
     Route: 042
  6. METHYLPREDNISOLONE [Suspect]
     Active Substance: METHYLPREDNISOLONE
     Dosage: APPROXIMATELY 2 YEARS (MINIMAL DOSE: 0.1 MG/KG/D; MAXIMAL DOSE: 1.3 MG/KG/D).
     Route: 048
  7. FLUDARABINE PHOSPHATE [Suspect]
     Active Substance: FLUDARABINE PHOSPHATE
     Indication: Immunosuppression
     Dosage: 40 MG/M2 (ON DAY -3, -4, -5 AND -6)
  8. CYCLOPHOSPHAMIDE [Suspect]
     Active Substance: CYCLOPHOSPHAMIDE
     Indication: Chronic graft versus host disease
     Dosage: 15 UG/KG, QD
  9. CYCLOPHOSPHAMIDE [Suspect]
     Active Substance: CYCLOPHOSPHAMIDE
     Indication: Apheresis
     Dosage: 1.5 G/M2 AT INTERVAL OF THREE WEEKS
  10. CYCLOPHOSPHAMIDE [Suspect]
     Active Substance: CYCLOPHOSPHAMIDE
     Indication: Immunosuppression
     Dosage: 2 G/M2
  11. CYCLOPHOSPHAMIDE [Suspect]
     Active Substance: CYCLOPHOSPHAMIDE
     Indication: Therapeutic embolisation
     Dosage: 60 MG/KG ON DAY -7 AND -8
  12. ANTI-THYMOCYTE GLOBULIN (RABBIT) NOS [Suspect]
     Active Substance: LAPINE T-LYMPHOCYTE IMMUNE GLOBULIN
     Indication: Immunosuppression
     Dosage: 15 MG/KG (DAY -7, -8, -9 AND -10)
  13. GRANULOCYTE COLONY-STIMULATING FACTOR NOS [Concomitant]
     Active Substance: GRANULOCYTE COLONY-STIMULATING FACTOR NOS
     Dosage: UNK
  14. GRANULOCYTE COLONY-STIMULATING FACTOR NOS [Concomitant]
     Active Substance: GRANULOCYTE COLONY-STIMULATING FACTOR NOS
     Dosage: 5 DAYS AFTER STEM CELL RESCUE
  15. ACYCLOVIR [Concomitant]
     Active Substance: ACYCLOVIR
     Indication: Antiviral prophylaxis
     Dosage: UNK
  16. CYCLOSPORINE [Concomitant]
     Active Substance: CYCLOSPORINE
     Indication: Prophylaxis against graft versus host disease
  17. SIROLIMUS [Concomitant]
     Active Substance: SIROLIMUS
     Indication: Chronic graft versus host disease
  18. SIROLIMUS [Concomitant]
     Active Substance: SIROLIMUS
     Indication: Chronic graft versus host disease in skin
  19. SIROLIMUS [Concomitant]
     Active Substance: SIROLIMUS
     Indication: Chronic graft versus host disease in lung
  20. SIROLIMUS [Concomitant]
     Active Substance: SIROLIMUS
     Indication: Chronic graft versus host disease in eye
  21. OFATUMUMAB [Concomitant]
     Active Substance: OFATUMUMAB
     Indication: Chronic graft versus host disease
  22. OFATUMUMAB [Concomitant]
     Active Substance: OFATUMUMAB
     Indication: Chronic graft versus host disease in skin
  23. OFATUMUMAB [Concomitant]
     Active Substance: OFATUMUMAB
     Indication: Chronic graft versus host disease in lung
  24. OFATUMUMAB [Concomitant]
     Active Substance: OFATUMUMAB
     Indication: Chronic graft versus host disease in eye
  25. RUXOLITINIB [Concomitant]
     Active Substance: RUXOLITINIB
     Indication: Chronic graft versus host disease
  26. RUXOLITINIB [Concomitant]
     Active Substance: RUXOLITINIB
     Indication: Chronic graft versus host disease in skin
  27. RUXOLITINIB [Concomitant]
     Active Substance: RUXOLITINIB
     Indication: Chronic graft versus host disease in lung
  28. RUXOLITINIB [Concomitant]
     Active Substance: RUXOLITINIB
     Indication: Chronic graft versus host disease in eye
  29. ADALIMUMAB [Concomitant]
     Active Substance: ADALIMUMAB
     Indication: Chronic graft versus host disease
  30. ADALIMUMAB [Concomitant]
     Active Substance: ADALIMUMAB
     Indication: Chronic graft versus host disease in skin
  31. ADALIMUMAB [Concomitant]
     Active Substance: ADALIMUMAB
     Indication: Chronic graft versus host disease in lung
  32. ADALIMUMAB [Concomitant]
     Active Substance: ADALIMUMAB
     Indication: Chronic graft versus host disease in eye
  33. PENTOSTATIN [Concomitant]
     Active Substance: PENTOSTATIN
     Indication: Chronic graft versus host disease
  34. PENTOSTATIN [Concomitant]
     Active Substance: PENTOSTATIN
     Indication: Chronic graft versus host disease in skin
  35. PENTOSTATIN [Concomitant]
     Active Substance: PENTOSTATIN
     Indication: Chronic graft versus host disease in lung
  36. PENTOSTATIN [Concomitant]
     Active Substance: PENTOSTATIN
     Indication: Chronic graft versus host disease in eye
  37. CASPOFUNGIN [Concomitant]
     Active Substance: CASPOFUNGIN
     Indication: Antifungal prophylaxis
     Dosage: UNK
  38. ETOPOSIDE [Concomitant]
     Active Substance: ETOPOSIDE
     Indication: Bone marrow conditioning regimen
  39. INFLIXIMAB [Concomitant]
     Active Substance: INFLIXIMAB
     Indication: Chronic graft versus host disease
  40. INFLIXIMAB [Concomitant]
     Active Substance: INFLIXIMAB
     Indication: Chronic graft versus host disease in skin
  41. INFLIXIMAB [Concomitant]
     Active Substance: INFLIXIMAB
     Indication: Chronic graft versus host disease in lung
  42. INFLIXIMAB [Concomitant]
     Active Substance: INFLIXIMAB
     Indication: Chronic graft versus host disease in eye

REACTIONS (3)
  - Osteonecrosis [Recovering/Resolving]
  - Cytomegalovirus infection reactivation [Unknown]
  - Off label use [Unknown]
